FAERS Safety Report 7063848-3 (Version None)
Quarter: 2010Q4

REPORT INFORMATION
  Report Type: 
  Country: None (occurrence: None)
  Receive Date: 20101026
  Receipt Date: 20100913
  Transmission Date: 20110411
  Serious: No
  Sender: FDA-Public Use
  Company Number: US-ABBOTT-10P-163-0670169-00

PATIENT
  Sex: Female

DRUGS (2)
  1. LUPRON DEPOT [Suspect]
     Indication: ENDOMETRIOSIS
     Dosage: 1 INJECTION/MONTH FOR 3 MONTHS
  2. LUPRON DEPOT [Suspect]
     Dosage: 1 INJECTION THAT LASTED FOR 3 MONTHS

REACTIONS (3)
  - HOT FLUSH [None]
  - MOOD SWINGS [None]
  - NAUSEA [None]
